FAERS Safety Report 9846216 (Version 1)
Quarter: 2013Q4

REPORT INFORMATION
  Report Type: Spontaneous
  Country: US (occurrence: None)
  Receive Date: 20131223
  Receipt Date: 20131223
  Transmission Date: 20140711
  Serious: Yes (Other)
  Sender: FDA-Public Use
  Company Number: CABO-13003241

PATIENT
  Age: 61 Year
  Sex: Male

DRUGS (8)
  1. COMETRIQ (CABOZANTINIB) CAPSULE [Suspect]
     Indication: THYROID CANCER
     Route: 048
     Dates: start: 20130207, end: 20130301
  2. OXYCONTIN (OXYCODONE HYDROCHLORIDE) [Concomitant]
  3. SYNTHROID (LEVOTHYROXINE SODIUM) [Concomitant]
  4. NORCO (HYDROCODONE BITARTRATE, PARACETAMOL) [Concomitant]
  5. LUNESTA (ESZOPICLONE) [Concomitant]
  6. AMBIEN (ZOLPIDEM TARTRATE) [Concomitant]
  7. NORVASC (AMLODIPINE BESILATE) [Concomitant]
  8. LIPITOR (ATORVASTATIN CALCIUM) [Concomitant]

REACTIONS (7)
  - Neck pain [None]
  - Leukopenia [None]
  - Dysphagia [None]
  - Oral discomfort [None]
  - Decreased appetite [None]
  - Weight decreased [None]
  - Arthralgia [None]
